FAERS Safety Report 11918957 (Version 1)
Quarter: 2016Q1

REPORT INFORMATION
  Report Type: Spontaneous
  Country: FR (occurrence: FR)
  Receive Date: 20160115
  Receipt Date: 20160115
  Transmission Date: 20160526
  Serious: Yes (Hospitalization)
  Sender: FDA-Public Use
  Company Number: FR-ASTRAZENECA-2016SE02677

PATIENT
  Age: 69 Year
  Sex: Male

DRUGS (10)
  1. EZETROL [Suspect]
     Active Substance: EZETIMIBE
     Indication: HYPERCHOLESTEROLAEMIA
     Route: 048
  2. CARDENSIEL [Concomitant]
     Active Substance: BISOPROLOL FUMARATE
  3. KARDEGIC [Suspect]
     Active Substance: ASPIRIN LYSINE
     Indication: PROPHYLAXIS
     Route: 065
  4. DEDROGYL [Concomitant]
     Active Substance: CALCIFEDIOL
  5. LANTUS [Concomitant]
     Active Substance: INSULIN GLARGINE
  6. TOCO [Concomitant]
     Active Substance: UNSPECIFIED INGREDIENT
  7. COZAAR [Suspect]
     Active Substance: LOSARTAN POTASSIUM
     Indication: HYPERTENSION
     Route: 065
  8. METFORMIN [Concomitant]
     Active Substance: METFORMIN HYDROCHLORIDE
  9. INEXIUM [Suspect]
     Active Substance: ESOMEPRAZOLE
     Indication: ULCER
     Route: 048
  10. AMAREL [Concomitant]
     Active Substance: GLIMEPIRIDE

REACTIONS (3)
  - Blood blister [Unknown]
  - Autoimmune haemolytic anaemia [Unknown]
  - Immune thrombocytopenic purpura [Unknown]
